FAERS Safety Report 5699537-7 (Version None)
Quarter: 2008Q2

REPORT INFORMATION
  Report Type: 
  Country: None (occurrence: None)
  Receive Date: 20080410
  Receipt Date: 20080402
  Transmission Date: 20081010
  Serious: Yes (Other)
  Sender: FDA-Public Use
  Company Number: GB-ABBOTT-08P-167-0445263-00

PATIENT
  Age: 22 Year
  Sex: Female
  Weight: 74.5 kg

DRUGS (2)
  1. SIBUTRAMINE [Suspect]
     Indication: OBESITY
     Dates: start: 20080114, end: 20080305
  2. EUGYNON [Concomitant]
     Indication: CONTRACEPTION

REACTIONS (1)
  - VAGINAL HAEMORRHAGE [None]
